FAERS Safety Report 18482042 (Version 4)
Quarter: 2021Q1

REPORT INFORMATION
  Report Type: Spontaneous
  Country: US (occurrence: US)
  Receive Date: 20201109
  Receipt Date: 20210113
  Transmission Date: 20210419
  Serious: Yes (Other)
  Sender: FDA-Public Use
  Company Number: US-GE HEALTHCARE LIFE SCIENCES-2020CSU005696

PATIENT
  Age: 40 Year
  Sex: Male
  Weight: 134 kg

DRUGS (4)
  1. OMNIPAQUE [Suspect]
     Active Substance: IOHEXOL
     Indication: COMPUTERISED TOMOGRAM ABDOMEN
     Dosage: 100 ML WITH POWER INJECTOR AT 2 ML/SEC, SINGLE
     Route: 040
     Dates: start: 20201029, end: 20201029
  2. OMNIPAQUE [Suspect]
     Active Substance: IOHEXOL
     Indication: HEPATOMEGALY
  3. METFORMIN [Concomitant]
     Active Substance: METFORMIN HYDROCHLORIDE
     Dosage: UNK
  4. OMNIPAQUE [Suspect]
     Active Substance: IOHEXOL
     Indication: HEPATIC STEATOSIS

REACTIONS (1)
  - Anaphylactic reaction [Unknown]

NARRATIVE: CASE EVENT DATE: 20201029
